FAERS Safety Report 7965754-6 (Version None)
Quarter: 2011Q4

REPORT INFORMATION
  Report Type: 
  Country: None (occurrence: None)
  Receive Date: 20111208
  Receipt Date: 20111205
  Transmission Date: 20120403
  Serious: Yes (Life-Threatening)
  Sender: FDA-Public Use
  Company Number: GB-TEVA-312146ISR

PATIENT
  Age: 92 Year
  Sex: Male
  Weight: 61.68 kg

DRUGS (19)
  1. CLIVERS EXTRACT [Concomitant]
     Dosage: STOPPED ON MY ADVICE DUE TO STRENGTH - MAXIMUM DOSAGE FOR AGE GROUP AND WEIGHT 100MG PER DAY
  2. BURDOCK EXTRACT [Concomitant]
     Dosage: AS PART OF A HEALTH TONIC - 2.5ML OF 105ML MIX FOUR TIMES A DAY BEFORE FOOD.
  3. BEE POLLEN [Concomitant]
     Dosage: 1 LEVEL TEASPOON TWICE DAILY WITH FOOD
  4. TAMSULOSIN HCL [Suspect]
     Indication: BLADDER OBSTRUCTION
     Route: 048
     Dates: start: 20111118
  5. GINGER [Concomitant]
     Dosage: AS PART OF A HEALTH TONIC - 2.5ML OF 105ML MIX FOUR TIMES A DAY BEFORE FOOD.
  6. HORSETAIL [Concomitant]
     Dosage: AS PART OF A HEALTH TONIC - 2.5ML OF 105ML MIX FOUR TIMES A DAY BEFORE FOOD.
  7. ERYTHROMYCIN [Concomitant]
     Indication: URINARY TRACT INFECTION
  8. YARROW [Concomitant]
     Dosage: AS PART OF A HEALTH TONIC - 2.5ML OF 105ML MIX FOUR TIMES A DAY BEFORE FOOD.
  9. MULTI-VITAMIN [Concomitant]
  10. LEVOTHYROXINE SODIUM [Concomitant]
  11. GOLD SEAL ANTISEPTIC POWDER [Concomitant]
     Dosage: FINISHED THESE 3 WEEKS BEFORE EPISODE ON 18TH NOVEMBER
  12. SAW PALMETTO [Concomitant]
     Dosage: DOSAGE NOT KNOWN. DUE TO APPARENT `FAILURE' OF THIS, INDICATES THAT CALCULI OBSTRUCTION MORE LIKELY.
  13. HAWTHORN BERRIES [Concomitant]
     Dosage: AS PART OF A HEALTH TONIC - 2.5ML OF 105ML MIX FOUR TIMES A DAY BEFORE FOOD.
  14. CORN SILK [Concomitant]
     Dosage: AS PART OF A HEALTH TONIC - 2.5ML OF 105ML MIX FOUR TIMES A DAY BEFORE FOOD.
  15. CHEMOTHERAPY [Concomitant]
     Indication: HODGKIN'S DISEASE
     Dates: start: 20110601
  16. ECHINACEA [Concomitant]
     Dosage: AS PART OF A HEALTH TONIC - 2.5ML OF 105ML MIX FOUR TIMES A DAY BEFORE FOOD.
  17. ASTRAGALUS GUMMIFER [Concomitant]
     Dosage: AS PART OF A HEALTH TONIC - 2.5ML OF 105ML MIX FOUR TIMES A DAY BEFORE FOOD.
  18. MILK THISTLE SEED [Concomitant]
     Dosage: AS PART OF A HEALTH TONIC - 2.5ML OF 105ML MIX FOUR TIMES A DAY BEFORE FOOD.
  19. HORSERADISH [Concomitant]
     Dosage: AS PART OF A HEALTH TONIC - 2.5ML OF 105ML MIX FOUR TIMES A DAY BEFORE FOOD.

REACTIONS (2)
  - INCONTINENCE [None]
  - CARDIAC DISORDER [None]
